FAERS Safety Report 8336972-2 (Version None)
Quarter: 2012Q2

REPORT INFORMATION
  Report Type: 
  Country: None (occurrence: None)
  Receive Date: 20120501
  Receipt Date: 20120418
  Transmission Date: 20120825
  Serious: Yes (Hospitalization)
  Sender: FDA-Public Use
  Company Number: 1263914

PATIENT
  Age: 64 Year
  Sex: Female

DRUGS (3)
  1. CYTARABINE [Suspect]
     Indication: HODGKIN'S DISEASE
     Dosage: 2680 MG, CYCLIC, INTRAVENOUS (NOT OTHERWISE SPECIFIED)
     Route: 042
     Dates: start: 20110708, end: 20110809
  2. OXALIPLATIN [Suspect]
     Indication: HODGKIN'S DISEASE
     Dosage: 174 MG, CYCLIC   INTRAVENOUS (NOT OTHERWISE SPECIFIED)
     Route: 042
     Dates: start: 20110808, end: 20110808
  3. PREDNISONE TAB [Suspect]
     Indication: HODGKIN'S DISEASE
     Dosage: 37.5 MG MILLIGRAM(S), ORAL
     Route: 048
     Dates: start: 20110707, end: 20110920

REACTIONS (2)
  - CATHETER SITE INFECTION [None]
  - THROMBOSIS [None]
